FAERS Safety Report 5466682-0 (Version None)
Quarter: 2007Q3

REPORT INFORMATION
  Report Type: 
  Country: None (occurrence: None)
  Receive Date: 20070924
  Receipt Date: 20070924
  Transmission Date: 20080115
  Serious: Yes (Hospitalization)
  Sender: FDA-Public Use
  Company Number: None

PATIENT
  Age: 28 Year
  Sex: Male
  Weight: 90.2658 kg

DRUGS (1)
  1. ALLEGRA [Suspect]
     Dosage: PO ONE QD
     Route: 048
     Dates: start: 20070918, end: 20070918

REACTIONS (1)
  - FOREIGN BODY TRAUMA [None]
